FAERS Safety Report 13343922 (Version 2)
Quarter: 2017Q1

REPORT INFORMATION
  Report Type: Report from Study
  Country: US (occurrence: US)
  Receive Date: 20170316
  Receipt Date: 20170324
  Transmission Date: 20170428
  Serious: Yes (Life-Threatening, Hospitalization, Congenital Anomaly)
  Sender: FDA-Public Use
  Company Number: US-ACTELION-A-NJ2017-151067

PATIENT
  Age: 19 Year
  Sex: Male
  Weight: 69.39 kg

DRUGS (8)
  1. OPSUMIT [Suspect]
     Active Substance: MACITENTAN
     Indication: PULMONARY HYPERTENSION
     Dosage: 10 MG, QD
     Route: 048
     Dates: start: 20161229
  2. MAGNESIUM [Concomitant]
     Active Substance: MAGNESIUM
     Dosage: UNK
  3. LEVOTHYROXINE. [Concomitant]
     Active Substance: LEVOTHYROXINE
     Dosage: 75 MCG, QD
  4. LASIX [Concomitant]
     Active Substance: FUROSEMIDE
     Dosage: 20 MG, QD
  5. SILDENAFIL CITRATE. [Concomitant]
     Active Substance: SILDENAFIL CITRATE
     Dosage: 20 MG, TID
     Dates: start: 20160330
  6. OPSUMIT [Suspect]
     Active Substance: MACITENTAN
     Dosage: UNK
     Route: 048
  7. BUDESONIDE. [Concomitant]
     Active Substance: BUDESONIDE
     Dosage: 3 MG, QD
  8. IMMUNOGLOBULIN G HUMAN [Concomitant]
     Active Substance: HUMAN IMMUNOGLOBULIN G
     Dosage: EVERY 2-3 WEEKS
     Route: 042

REACTIONS (13)
  - Syncope [Recovered/Resolved]
  - Sinus arrest [Recovered/Resolved]
  - Fluid retention [Unknown]
  - Fall [Unknown]
  - Dehydration [Recovered/Resolved]
  - Atrial flutter [Recovered/Resolved]
  - Injury [Unknown]
  - Fatigue [Unknown]
  - Pneumonia klebsiella [Recovered/Resolved]
  - Klebsiella sepsis [Recovered/Resolved]
  - Gastrointestinal infection [Recovered/Resolved]
  - Cerebrovascular accident [Unknown]
  - Loss of consciousness [Unknown]
